FAERS Safety Report 5374786-6 (Version None)
Quarter: 2007Q2

REPORT INFORMATION
  Report Type: 
  Country: None (occurrence: None)
  Receive Date: 20070629
  Receipt Date: 20070618
  Transmission Date: 20071010
  Serious: Yes (Hospitalization)
  Sender: FDA-Public Use
  Company Number: DK-ROCHE-503047

PATIENT
  Age: 20 Year
  Sex: Female

DRUGS (2)
  1. RIVOTRIL [Suspect]
     Indication: TREMOR
     Dosage: GIVEN IN THE EVENING.
     Route: 048
     Dates: start: 20061215
  2. NOVYNETTE [Interacting]
     Indication: CONTRACEPTION
     Dosage: FORM: FILM COATED TABL.
     Route: 048
     Dates: start: 20040101

REACTIONS (2)
  - DRUG INTERACTION [None]
  - UNWANTED PREGNANCY [None]
